FAERS Safety Report 13521383 (Version 3)
Quarter: 2017Q2

REPORT INFORMATION
  Report Type: Spontaneous
  Country: US (occurrence: US)
  Receive Date: 20170508
  Receipt Date: 20170523
  Transmission Date: 20170830
  Serious: No
  Sender: FDA-Public Use
  Company Number: US-PFIZER INC-2017196947

PATIENT
  Age: 73 Year
  Sex: Female
  Weight: 79.38 kg

DRUGS (1)
  1. LYRICA [Suspect]
     Active Substance: PREGABALIN
     Indication: FIBROMYALGIA
     Dosage: 150 MG, 3X/DAY
     Route: 048

REACTIONS (6)
  - Product physical issue [Unknown]
  - Malaise [Unknown]
  - Confusional state [Unknown]
  - Condition aggravated [Unknown]
  - Poor quality drug administered [Unknown]
  - Pain [Unknown]

NARRATIVE: CASE EVENT DATE: 20170419
